FAERS Safety Report 23912644 (Version 1)
Quarter: 2024Q2

REPORT INFORMATION
  Report Type: Spontaneous
  Country: US (occurrence: US)
  Receive Date: 20240529
  Receipt Date: 20240529
  Transmission Date: 20240716
  Serious: Yes (Life-Threatening, Hospitalization)
  Sender: FDA-Public Use
  Company Number: US-AVET LIFESCIENCES LTD-2024-AVET-000183

PATIENT
  Age: 41 Year
  Sex: Male

DRUGS (1)
  1. VANCOMYCIN HYDROCHLORIDE [Suspect]
     Active Substance: VANCOMYCIN HYDROCHLORIDE
     Indication: Cellulitis
     Dosage: 2 GRAM (RECEIVED A TOTAL OF THREE DOSES OF IV VANCOMYCIN (2 G LOADING DOSE FOLLOWED BY 1.5 G EVERY 1
     Route: 042

REACTIONS (2)
  - Kounis syndrome [Recovered/Resolved]
  - Acute coronary syndrome [Recovered/Resolved]
